FAERS Safety Report 20738897 (Version 1)
Quarter: 2022Q2

REPORT INFORMATION
  Report Type: Spontaneous
  Country: AU (occurrence: AU)
  Receive Date: 20220422
  Receipt Date: 20220422
  Transmission Date: 20220720
  Serious: Yes (Other)
  Sender: FDA-Public Use
  Company Number: AU-AMGEN-AUSSP2022069105

PATIENT
  Age: 53 Year
  Sex: Male
  Weight: 80 kg

DRUGS (30)
  1. PEGFILGRASTIM [Suspect]
     Active Substance: PEGFILGRASTIM
     Indication: Diffuse large B-cell lymphoma
     Route: 065
  2. PEGFILGRASTIM [Suspect]
     Active Substance: PEGFILGRASTIM
     Indication: Off label use
  3. CARBOPLATIN [Suspect]
     Active Substance: CARBOPLATIN
     Indication: Diffuse large B-cell lymphoma
     Route: 065
  4. CYCLOPHOSPHAMIDE [Suspect]
     Active Substance: CYCLOPHOSPHAMIDE
     Indication: Diffuse large B-cell lymphoma
     Route: 065
  5. DOXORUBICIN HYDROCHLORIDE [Suspect]
     Active Substance: DOXORUBICIN HYDROCHLORIDE
     Indication: Diffuse large B-cell lymphoma
     Route: 065
  6. ETOPOSIDE [Suspect]
     Active Substance: ETOPOSIDE
     Indication: Diffuse large B-cell lymphoma
     Route: 065
  7. GEMCITABINE HYDROCHLORIDE [Suspect]
     Active Substance: GEMCITABINE HYDROCHLORIDE
     Indication: Diffuse large B-cell lymphoma
     Route: 065
  8. IFOSFAMIDE [Suspect]
     Active Substance: IFOSFAMIDE
     Indication: Diffuse large B-cell lymphoma
     Route: 065
  9. MESNA [Suspect]
     Active Substance: MESNA
     Indication: Diffuse large B-cell lymphoma
     Route: 065
  10. OXALIPLATIN [Suspect]
     Active Substance: OXALIPLATIN
     Indication: Diffuse large B-cell lymphoma
     Route: 065
  11. PREDNISOLONE [Suspect]
     Active Substance: PREDNISOLONE
     Indication: Diffuse large B-cell lymphoma
     Route: 065
  12. RITUXIMAB [Suspect]
     Active Substance: RITUXIMAB
     Indication: Diffuse large B-cell lymphoma
     Route: 065
  13. VINCRISTINE SULFATE [Suspect]
     Active Substance: VINCRISTINE SULFATE
     Indication: Diffuse large B-cell lymphoma
     Route: 065
  14. ALLOPURINOL [Concomitant]
     Active Substance: ALLOPURINOL
  15. ASPIRIN [Concomitant]
     Active Substance: ASPIRIN
  16. ATORVASTATIN [Concomitant]
     Active Substance: ATORVASTATIN
  17. EMPAGLIFLOZIN [Concomitant]
     Active Substance: EMPAGLIFLOZIN
  18. FLUCONAZOLE [Concomitant]
     Active Substance: FLUCONAZOLE
  19. GLICLAZIDE [Concomitant]
     Active Substance: GLICLAZIDE
  20. INSULIN NOS [Concomitant]
     Active Substance: INSULIN NOS
  21. MAGNESIUM ASPARTATE [Concomitant]
     Active Substance: MAGNESIUM ASPARTATE
  22. METFORMIN HYDROCHLORIDE [Concomitant]
     Active Substance: METFORMIN HYDROCHLORIDE
  23. METOCLOPRAMIDE [Concomitant]
     Active Substance: METOCLOPRAMIDE
  24. METOPROLOL TARTRATE [Concomitant]
     Active Substance: METOPROLOL TARTRATE
  25. ONDANSETRON [Concomitant]
     Active Substance: ONDANSETRON
  26. PANTOPRAZOLE [Concomitant]
     Active Substance: PANTOPRAZOLE
  27. PERINDOPRIL [Concomitant]
     Active Substance: PERINDOPRIL
  28. SITAGLIPTIN [Concomitant]
     Active Substance: SITAGLIPTIN
  29. TRIMETHOPRIM [Concomitant]
     Active Substance: TRIMETHOPRIM
  30. VALACYCLOVIR HYDROCHLORIDE [Concomitant]
     Active Substance: VALACYCLOVIR HYDROCHLORIDE

REACTIONS (3)
  - Diffuse large B-cell lymphoma [Unknown]
  - Drug ineffective [Unknown]
  - Off label use [Unknown]
